FAERS Safety Report 9477229 (Version 3)
Quarter: 2014Q1

REPORT INFORMATION
  Report Type: Spontaneous
  Country: US (occurrence: US)
  Receive Date: 20130826
  Receipt Date: 20140213
  Transmission Date: 20141002
  Serious: Yes (Death, Hospitalization, Other)
  Sender: FDA-Public Use
  Company Number: US-B.I. PHARMACEUTICALS,INC./RIDGEFIELD-2013-BI-26230BP

PATIENT
  Age: 85 Year
  Sex: Male
  Weight: 64.41 kg

DRUGS (14)
  1. PRADAXA [Suspect]
     Indication: ANTICOAGULANT THERAPY
     Dosage: 150 MG
     Route: 048
     Dates: start: 2010, end: 20111122
  2. DIOVAN [Concomitant]
     Dosage: 320 MG
     Route: 048
  3. NITRO-DUR PATCH [Concomitant]
  4. COREG [Concomitant]
     Dosage: 25 MG
     Route: 048
  5. LASIX [Concomitant]
     Dosage: 40 MG
     Route: 048
  6. DIGOXIN [Concomitant]
     Dosage: 0.25 MG
     Route: 048
  7. ASPIRIN [Concomitant]
     Dosage: 81 MG
     Route: 048
  8. PRAVACHOL [Concomitant]
     Dosage: 40 MG
     Route: 048
  9. INSULIN [Concomitant]
  10. OCUVITE [Concomitant]
     Dosage: 1 MG
     Route: 048
  11. COSOPT [Concomitant]
  12. ALPHAGAN [Concomitant]
  13. LUMIGAN [Concomitant]
  14. VITAMIN C [Concomitant]
     Dosage: 500 MG
     Route: 048

REACTIONS (6)
  - Gastrointestinal haemorrhage [Fatal]
  - Acute myocardial infarction [Fatal]
  - Haemorrhagic anaemia [Unknown]
  - Cardiac failure [Unknown]
  - Acute respiratory failure [Unknown]
  - Renal failure [Unknown]
